FAERS Safety Report 15420562 (Version 1)
Quarter: 2018Q3

REPORT INFORMATION
  Report Type: Spontaneous
  Country: US (occurrence: US)
  Receive Date: 20180924
  Receipt Date: 20180924
  Transmission Date: 20181010
  Serious: No
  Sender: FDA-Public Use
  Company Number: US-ALLERGAN-1811711US

PATIENT
  Sex: Male

DRUGS (3)
  1. LINZESS [Suspect]
     Active Substance: LINACLOTIDE
     Indication: CONSTIPATION
  2. LINZESS [Suspect]
     Active Substance: LINACLOTIDE
     Indication: ANAL STENOSIS
     Dosage: 72 ?G, QD
     Route: 048
     Dates: start: 20180228
  3. MIRALAX [Concomitant]
     Active Substance: POLYETHYLENE GLYCOL 3350
     Indication: CONSTIPATION
     Route: 048

REACTIONS (5)
  - Blood pressure abnormal [Not Recovered/Not Resolved]
  - Anxiety [Recovered/Resolved]
  - Therapeutic response unexpected [Unknown]
  - Drug ineffective [Unknown]
  - Off label use [Unknown]

NARRATIVE: CASE EVENT DATE: 20180228
